FAERS Safety Report 19773103 (Version 1)
Quarter: 2021Q3

REPORT INFORMATION
  Report Type: Spontaneous
  Country: CA (occurrence: CA)
  Receive Date: 20210901
  Receipt Date: 20210901
  Transmission Date: 20211014
  Serious: Yes (Other)
  Sender: FDA-Public Use
  Company Number: CA-009507513-2108CAN007133

PATIENT
  Age: 84 Year
  Sex: Male

DRUGS (8)
  1. CIPROFLOXACIN. [Suspect]
     Active Substance: CIPROFLOXACIN
     Indication: OSTEOMYELITIS BACTERIAL
     Dosage: 500 MILLIGRAM, BID
     Route: 048
  2. INVANZ [Suspect]
     Active Substance: ERTAPENEM SODIUM
     Indication: WOUND INFECTION PSEUDOMONAS
  3. INVANZ [Suspect]
     Active Substance: ERTAPENEM SODIUM
     Indication: BETA HAEMOLYTIC STREPTOCOCCAL INFECTION
  4. CIPROFLOXACIN. [Suspect]
     Active Substance: CIPROFLOXACIN
     Indication: WOUND INFECTION STAPHYLOCOCCAL
  5. INVANZ [Suspect]
     Active Substance: ERTAPENEM SODIUM
     Indication: WOUND INFECTION STAPHYLOCOCCAL
  6. CIPROFLOXACIN. [Suspect]
     Active Substance: CIPROFLOXACIN
     Indication: BETA HAEMOLYTIC STREPTOCOCCAL INFECTION
  7. INVANZ [Suspect]
     Active Substance: ERTAPENEM SODIUM
     Indication: OSTEOMYELITIS BACTERIAL
     Dosage: 1 GRAM, QD
     Route: 042
  8. CIPROFLOXACIN. [Suspect]
     Active Substance: CIPROFLOXACIN
     Indication: WOUND INFECTION PSEUDOMONAS

REACTIONS (1)
  - Drug ineffective [Unknown]
